FAERS Safety Report 8760455 (Version 1)
Quarter: 2012Q4

REPORT INFORMATION
  Report Type: Spontaneous
  Country: US (occurrence: None)
  Receive Date: 20120829
  Receipt Date: 20120829
  Transmission Date: 20130627
  Serious: Yes (Hospitalization)
  Sender: FDA-Public Use
  Company Number: None

PATIENT
  Age: 57 Year
  Sex: Male
  Weight: 84.5 kg

DRUGS (3)
  1. EXTENDED-RELEASE NALTREXONE (VIVITROL) 380 MG IM INJECTION ALKERMES, INC. [Suspect]
     Indication: OPIATE DEPENDENCY RELAPSE
     Route: 030
  2. EXTENDED-RELEASE NALTREXONE (VIVITROL) 380 MG IM INJECTION ALKERMES, INC. [Suspect]
     Indication: PROPHYLAXIS
     Route: 030
  3. NALOXONE HYDROCHLORIDE [Suspect]
     Route: 042

REACTIONS (6)
  - Withdrawal syndrome [None]
  - Cold sweat [None]
  - Chills [None]
  - Dizziness [None]
  - Diarrhoea [None]
  - Pain [None]
